FAERS Safety Report 6868390 (Version 9)
Quarter: 2016Q2

REPORT INFORMATION
  Report Type: Spontaneous
  Country: US (occurrence: US)
  Receive Date: 20081229
  Receipt Date: 20160622
  Transmission Date: 20160815
  Serious: Yes (Hospitalization)
  Sender: FDA-Public Use
  Company Number: US-ASTRAZENECA-2008UW15804

PATIENT
  Age: 851 Month
  Sex: Male
  Weight: 83 kg

DRUGS (31)
  1. LISIPRIL [Suspect]
     Active Substance: LISINOPRIL
     Indication: CARDIAC DISORDER
     Route: 048
  2. BRILINTA [Suspect]
     Active Substance: TICAGRELOR
     Indication: STENT PLACEMENT
     Route: 048
     Dates: start: 201602
  3. METFORMIN [Concomitant]
     Active Substance: METFORMIN HYDROCHLORIDE
     Indication: BLOOD GLUCOSE ABNORMAL
     Route: 048
  4. CRESTOR [Suspect]
     Active Substance: ROSUVASTATIN CALCIUM
     Indication: BLOOD CHOLESTEROL INCREASED
     Dosage: 10.0MG UNKNOWN
     Route: 048
     Dates: start: 200807, end: 200812
  5. SYMBICORT [Suspect]
     Active Substance: BUDESONIDE\FORMOTEROL FUMARATE DIHYDRATE
     Indication: CHRONIC OBSTRUCTIVE PULMONARY DISEASE
     Dosage: 160/4.5 MCG 2 PUFFS TWICE A DAY
     Route: 055
     Dates: start: 2015
  6. ASPIRIN. [Concomitant]
     Active Substance: ASPIRIN
     Indication: CARDIAC DISORDER
     Route: 048
     Dates: start: 201601
  7. CARVEDILOL. [Concomitant]
     Active Substance: CARVEDILOL
     Indication: CARDIAC DISORDER
     Route: 048
  8. ISOSORBMONO [Concomitant]
     Route: 048
  9. LISIPRIL [Suspect]
     Active Substance: LISINOPRIL
     Indication: CARDIAC DISORDER
     Route: 048
  10. ANTIVERT [Concomitant]
     Active Substance: MECLIZINE HYDROCHLORIDE
  11. POTASSIUM [Concomitant]
     Active Substance: POTASSIUM
     Route: 048
  12. TAMSULOSIN [Concomitant]
     Active Substance: TAMSULOSIN
     Indication: URINARY RETENTION
     Route: 048
  13. POTACHLORIDE [Concomitant]
     Route: 048
  14. PRINIVIL [Concomitant]
     Active Substance: LISINOPRIL
  15. ASPIRIN. [Concomitant]
     Active Substance: ASPIRIN
     Indication: BLOOD DISORDER
     Route: 048
     Dates: start: 201601
  16. ASPIRIN. [Concomitant]
     Active Substance: ASPIRIN
     Indication: CARDIAC DISORDER
     Dosage: BABY 81MG DAILY
     Route: 048
     Dates: start: 201601
  17. CARVEDILOL. [Concomitant]
     Active Substance: CARVEDILOL
     Indication: CARDIAC DISORDER
     Route: 048
  18. IMDUR [Concomitant]
     Active Substance: ISOSORBIDE MONONITRATE
     Indication: CARDIAC DISORDER
     Route: 048
  19. ASPIRIN. [Concomitant]
     Active Substance: ASPIRIN
     Indication: CARDIAC DISORDER
     Route: 048
     Dates: start: 201601
  20. BILENNA [Concomitant]
     Indication: BLOOD DISORDER
     Route: 048
     Dates: start: 201601
  21. BRILINTA [Suspect]
     Active Substance: TICAGRELOR
     Indication: ANTICOAGULANT THERAPY
     Route: 048
     Dates: start: 201602
  22. LASIX [Concomitant]
     Active Substance: FUROSEMIDE
     Dosage: 40 MG
  23. PRAVASTSTIN [Concomitant]
     Indication: BLOOD CHOLESTEROL ABNORMAL
     Route: 048
  24. LOPRESSOR [Concomitant]
     Active Substance: METOPROLOL TARTRATE
  25. ASPIRIN. [Concomitant]
     Active Substance: ASPIRIN
     Indication: BLOOD DISORDER
     Route: 048
     Dates: start: 201601
  26. ALBUTEROL. [Concomitant]
     Active Substance: ALBUTEROL
     Indication: DYSPNOEA
     Dosage: 1 PUFF BID AS NEEDED
     Route: 055
     Dates: start: 201312
  27. BUMEX [Concomitant]
     Active Substance: BUMETANIDE
     Indication: FLUID RETENTION
     Route: 048
  28. ISOSORBIDE. [Concomitant]
     Active Substance: ISOSORBIDE
  29. PLAVIX [Concomitant]
     Active Substance: CLOPIDOGREL BISULFATE
  30. ASPIRIN. [Concomitant]
     Active Substance: ASPIRIN
     Indication: BLOOD DISORDER
     Dosage: BABY 81MG DAILY
     Route: 048
     Dates: start: 201601
  31. METFORMIN [Concomitant]
     Active Substance: METFORMIN HYDROCHLORIDE
     Indication: BLOOD GLUCOSE ABNORMAL
     Route: 048

REACTIONS (16)
  - Nervousness [Unknown]
  - Abnormal loss of weight [Unknown]
  - Dizziness [Recovering/Resolving]
  - Balance disorder [Recovering/Resolving]
  - Myocardial infarction [Unknown]
  - Asthenia [Recovering/Resolving]
  - Heart rate increased [Unknown]
  - Blood pressure increased [Unknown]
  - Hypotension [Unknown]
  - Fatigue [Unknown]
  - Blood pressure abnormal [Unknown]
  - Pain in extremity [Not Recovered/Not Resolved]
  - Renal neoplasm [Unknown]
  - Gait disturbance [Unknown]
  - Cardiovascular disorder [Unknown]
  - Tremor [Unknown]

NARRATIVE: CASE EVENT DATE: 200807
